FAERS Safety Report 7080854-3 (Version None)
Quarter: 2010Q4

REPORT INFORMATION
  Report Type: 
  Country: None (occurrence: None)
  Receive Date: 20101103
  Receipt Date: 20101022
  Transmission Date: 20110411
  Serious: Yes (Other)
  Sender: FDA-Public Use
  Company Number: GB-PFIZER INC-2010115092

PATIENT
  Age: 48 Year
  Sex: Female
  Weight: 100 kg

DRUGS (3)
  1. PREGABALIN [Suspect]
     Indication: PERIPHERAL SENSORY NEUROPATHY
     Dosage: 100MG MORNING, 200MG EVENING
     Route: 048
     Dates: start: 20100823
  2. PREGABALIN [Suspect]
     Dosage: 125MG MORNING, 250MG EVENING
     Route: 048
     Dates: start: 20100801
  3. PREGABALIN [Suspect]
     Dosage: UNK MG, UNK
     Route: 048
     Dates: start: 20100828

REACTIONS (24)
  - AMNESIA [None]
  - ANXIETY [None]
  - ARRHYTHMIA [None]
  - BALANCE DISORDER [None]
  - BRADYPHRENIA [None]
  - DISTURBANCE IN ATTENTION [None]
  - FALL [None]
  - FEELING DRUNK [None]
  - FIBROMYALGIA [None]
  - GAIT DISTURBANCE [None]
  - HALLUCINATION [None]
  - HYPERHIDROSIS [None]
  - HYPOREFLEXIA [None]
  - INSOMNIA [None]
  - MUSCLE TWITCHING [None]
  - ORAL PAIN [None]
  - PAIN IN JAW [None]
  - PALPITATIONS [None]
  - PANIC DISORDER [None]
  - SUPRAVENTRICULAR TACHYCARDIA [None]
  - TACHYPHRENIA [None]
  - THINKING ABNORMAL [None]
  - TREMOR [None]
  - WEIGHT INCREASED [None]
